FAERS Safety Report 15539502 (Version 1)
Quarter: 2018Q4

REPORT INFORMATION
  Report Type: Spontaneous
  Country: FR (occurrence: FR)
  Receive Date: 20181023
  Receipt Date: 20181023
  Transmission Date: 20190205
  Serious: Yes (Hospitalization)
  Sender: FDA-Public Use
  Company Number: FR-TEVA-2018-FR-967599

PATIENT
  Age: 21 Year
  Sex: Male
  Weight: 91 kg

DRUGS (6)
  1. ENDOXAN [Suspect]
     Active Substance: CYCLOPHOSPHAMIDE
     Indication: HODGKIN^S DISEASE STAGE III
     Dosage: 2750 MILLIGRAM DAILY;
     Route: 042
     Dates: start: 20180105, end: 20180105
  2. BLEOMYCINE [Suspect]
     Active Substance: BLEOMYCIN SULFATE
     Indication: HODGKIN^S DISEASE STAGE III
     Dosage: 21 MILLIGRAM DAILY;
     Route: 041
     Dates: start: 20180112, end: 20180112
  3. NATULAN [Suspect]
     Active Substance: PROCARBAZINE HYDROCHLORIDE
     Indication: HODGKIN^S DISEASE STAGE III
     Dosage: 200 MILLIGRAM DAILY;
     Route: 048
     Dates: start: 20180105, end: 20180111
  4. VINCRISTINE HOSPIRA [Suspect]
     Active Substance: VINCRISTINE
     Indication: HODGKIN^S DISEASE STAGE III
     Dosage: 2 MILLIGRAM DAILY;
     Route: 041
     Dates: start: 20180112, end: 20180112
  5. ETOPOSIDE TEVA [Suspect]
     Active Substance: ETOPOSIDE
     Indication: HODGKIN^S DISEASE STAGE III
     Dosage: 440 MILLIGRAM DAILY;
     Route: 041
     Dates: start: 20180105, end: 20180107
  6. DOXORUBICINE ACCORD [Suspect]
     Active Substance: DOXORUBICIN
     Indication: HODGKIN^S DISEASE STAGE III
     Dosage: 76 MILLIGRAM DAILY;
     Route: 041
     Dates: start: 20180105, end: 20180105

REACTIONS (1)
  - Bone marrow failure [Recovered/Resolved]

NARRATIVE: CASE EVENT DATE: 20180115
